FAERS Safety Report 7867635-5 (Version None)
Quarter: 2011Q4

REPORT INFORMATION
  Report Type: 
  Country: None (occurrence: None)
  Receive Date: 20111028
  Receipt Date: 20111026
  Transmission Date: 20120403
  Serious: Yes (Life-Threatening, Hospitalization, Disabling, Other)
  Sender: FDA-Public Use
  Company Number: PHHY2011CA72722

PATIENT
  Sex: Male

DRUGS (2)
  1. FLUANXOL [Concomitant]
     Dosage: 20 MG, EVERY 2 WEEKS
     Route: 030
  2. CLOZARIL [Suspect]
     Indication: SCHIZOPHRENIA
     Dosage: 200 MG, 50 MG QAM AND 150 MG QHS
     Route: 048
     Dates: start: 20100726, end: 20111004

REACTIONS (2)
  - RECTAL ABSCESS [None]
  - INFECTION [None]
